FAERS Safety Report 13862248 (Version 3)
Quarter: 2017Q4

REPORT INFORMATION
  Report Type: Spontaneous
  Country: US (occurrence: US)
  Receive Date: 20170813
  Receipt Date: 20171115
  Transmission Date: 20180320
  Serious: No
  Sender: FDA-Public Use
  Company Number: GXBR2017US000518

PATIENT
  Sex: Male

DRUGS (7)
  1. ZOCOR [Concomitant]
     Active Substance: SIMVASTATIN
     Indication: BLOOD PRESSURE ABNORMAL
     Route: 065
  2. TRILEPTAL [Concomitant]
     Active Substance: OXCARBAZEPINE
     Indication: PRODUCT USED FOR UNKNOWN INDICATION
     Route: 065
  3. METOPROLOL. [Concomitant]
     Active Substance: METOPROLOL
     Indication: BLOOD PRESSURE ABNORMAL
     Route: 065
  4. PERPHENAZINE TABLETS USP [Suspect]
     Active Substance: PERPHENAZINE
     Indication: OBSESSIVE-COMPULSIVE DISORDER
  5. PERPHENAZINE TABLETS USP [Suspect]
     Active Substance: PERPHENAZINE
     Indication: ATTENTION DEFICIT/HYPERACTIVITY DISORDER
  6. REMERON [Concomitant]
     Active Substance: MIRTAZAPINE
     Indication: PRODUCT USED FOR UNKNOWN INDICATION
     Route: 065
  7. PERPHENAZINE TABLETS USP [Suspect]
     Active Substance: PERPHENAZINE
     Indication: BIPOLAR DISORDER
     Dosage: 2.5 DF, QD (0.5 DF IN MORNING, 0.5 DF IN THE AFTERNOON, 1.5 DF AT NIGHT)
     Route: 065
     Dates: start: 201702

REACTIONS (3)
  - Incorrect dose administered [Unknown]
  - Wrong technique in product usage process [Unknown]
  - Product physical issue [Unknown]
